FAERS Safety Report 10435687 (Version 2)
Quarter: 2014Q3

REPORT INFORMATION
  Report Type: Spontaneous
  Country: GB (occurrence: GB)
  Receive Date: 20140908
  Receipt Date: 20140916
  Transmission Date: 20150326
  Serious: Yes (Hospitalization)
  Sender: FDA-Public Use
  Company Number: PHFR2014GB005914

PATIENT
  Age: 65 Year
  Sex: Male

DRUGS (2)
  1. CLOZARIL [Suspect]
     Active Substance: CLOZAPINE
     Indication: SCHIZOPHRENIA
     Dosage: UNK UKN, UNK
     Route: 048
     Dates: start: 20140801, end: 20140822
  2. CLOZARIL [Suspect]
     Active Substance: CLOZAPINE
     Dosage: 100 MG, UNK (MORNING IN ERROR)
     Dates: start: 20140904

REACTIONS (3)
  - Pyrexia [Unknown]
  - Medication error [Unknown]
  - Malaise [Unknown]

NARRATIVE: CASE EVENT DATE: 20140821
